FAERS Safety Report 5920037-0 (Version None)
Quarter: 2008Q4

REPORT INFORMATION
  Report Type: 
  Country: None (occurrence: None)
  Receive Date: 20081014
  Receipt Date: 20080927
  Transmission Date: 20090506
  Serious: Yes (Hospitalization)
  Sender: FDA-Public Use
  Company Number: 2008US002349

PATIENT
  Age: 78 Year
  Sex: Female

DRUGS (11)
  1. VESICARE [Suspect]
     Indication: POLLAKIURIA
     Dosage: 5 MG, UID/QD, ORAL : 10 MG, UID/QD, ORAL
     Route: 048
     Dates: start: 20080301, end: 20080301
  2. VESICARE [Suspect]
     Indication: POLLAKIURIA
     Dosage: 5 MG, UID/QD, ORAL : 10 MG, UID/QD, ORAL
     Route: 048
     Dates: start: 20080301, end: 20080301
  3. METHOTREXATE [Concomitant]
  4. FOLIC ACID [Concomitant]
  5. PLAVIX [Concomitant]
  6. NEXIUM (ESOMEPRAZOLE SODIUM) [Concomitant]
  7. VITAMIN D (COLECALCIFEROL) [Concomitant]
  8. LEVOXYL [Concomitant]
  9. LIPITOR (AOTRVASTATIN CALCIUM) [Concomitant]
  10. ZOLOFT [Concomitant]
  11. ZETIA [Concomitant]

REACTIONS (3)
  - BACTERAEMIA [None]
  - MALAISE [None]
  - VOMITING [None]
